FAERS Safety Report 19678623 (Version 1)
Quarter: 2021Q3

REPORT INFORMATION
  Report Type: Spontaneous
  Country: US (occurrence: US)
  Receive Date: 20210809
  Receipt Date: 20210809
  Transmission Date: 20211014
  Serious: No
  Sender: FDA-Public Use
  Company Number: US-SA-2021SA259291

PATIENT
  Age: 71 Year
  Sex: Female

DRUGS (2)
  1. LANTUS SOLOSTAR [Suspect]
     Active Substance: INSULIN GLARGINE
     Indication: TYPE 1 DIABETES MELLITUS
     Dosage: 10 UNITS (ON A SLIDING SCALE IF BLOOD SUGAR GETS HIGH, EVERY MORNING
     Route: 065
  2. NOVOLOG [Concomitant]
     Active Substance: INSULIN ASPART
     Dosage: 6 UNITS THREE TIMES A DAY AND A SCALE FOR CORRECTION
     Route: 065

REACTIONS (2)
  - Blood glucose abnormal [Unknown]
  - Visual impairment [Unknown]
